FAERS Safety Report 8084384-1 (Version None)
Quarter: 2012Q1

REPORT INFORMATION
  Report Type: 
  Country: None (occurrence: None)
  Receive Date: 20120128
  Receipt Date: 20110323
  Transmission Date: 20120608
  Serious: No
  Sender: FDA-Public Use
  Company Number: US-ABBOTT-11P-163-0714312-00

PATIENT
  Sex: Female
  Weight: 114.41 kg

DRUGS (9)
  1. ZOCOR [Concomitant]
     Indication: HYPERLIPIDAEMIA
  2. FLUOXETINE [Concomitant]
     Indication: DEPRESSION
  3. DIOVAN [Concomitant]
     Indication: HYPERTENSION
  4. METOPROLOL TARTRATE [Concomitant]
     Indication: HYPERTENSION
  5. CALCIUM + VITAMIN D [Concomitant]
     Indication: VITAMIN SUPPLEMENTATION
  6. HUMIRA [Suspect]
     Dates: start: 20101019
  7. LEVOTHYROXINE SODIUM [Concomitant]
     Indication: HYPOTHYROIDISM
  8. MULTI-VITAMIN [Concomitant]
     Indication: VITAMIN SUPPLEMENTATION
  9. HUMIRA [Suspect]
     Indication: PSORIASIS
     Dates: start: 20080301, end: 20081201

REACTIONS (1)
  - INJECTION SITE PAIN [None]
